FAERS Safety Report 9628880 (Version 1)
Quarter: 2013Q4

REPORT INFORMATION
  Report Type: Spontaneous
  Country: US (occurrence: US)
  Receive Date: 20131017
  Receipt Date: 20131017
  Transmission Date: 20140711
  Serious: Yes (Hospitalization, Other)
  Sender: FDA-Public Use
  Company Number: US-JNJFOC-20131004204

PATIENT
  Age: 54 Year
  Sex: Female
  Weight: 68.95 kg

DRUGS (18)
  1. DURAGESIC [Suspect]
     Indication: PAIN
     Dosage: 100 UG/HR PLUS 25 UG/HR PATCHES
     Route: 062
     Dates: start: 20131001
  2. DURAGESIC [Suspect]
     Indication: PAIN
     Route: 062
     Dates: start: 201204, end: 20131001
  3. DURAGESIC [Suspect]
     Indication: PAIN
     Dosage: TWO 100 UG/HR PATCHES
     Route: 062
     Dates: start: 200309, end: 201204
  4. TYLENOL [Suspect]
     Route: 048
  5. TYLENOL [Suspect]
     Indication: PAIN
     Route: 048
     Dates: start: 2012
  6. POTASSIUM [Concomitant]
     Route: 065
  7. DILAUDID [Concomitant]
     Indication: BREAKTHROUGH PAIN
     Dosage: TWICE A DAY AS NEEDED
     Route: 048
  8. DILAUDID [Concomitant]
     Indication: BREAKTHROUGH PAIN
     Dosage: TWICE A DAY AS NEEDED
     Route: 048
  9. ADVAIR [Concomitant]
     Indication: ASTHMA
     Route: 055
  10. CLONIDINE [Concomitant]
     Indication: HOT FLUSH
     Route: 065
  11. CLONIDINE [Concomitant]
     Indication: MIGRAINE
     Route: 065
  12. MIRAPEX [Concomitant]
     Indication: RESTLESS LEGS SYNDROME
     Route: 065
  13. LASIX [Concomitant]
     Route: 065
  14. ATARAX [Concomitant]
     Indication: PRURITUS
     Route: 065
  15. REGLAN [Concomitant]
     Indication: OESOPHAGEAL MOTILITY DISORDER
     Route: 065
  16. ACIPHEX [Concomitant]
     Indication: GASTROOESOPHAGEAL REFLUX DISEASE
     Route: 065
  17. PANCREASE (PANCRELIPASE) [Concomitant]
     Indication: PANCREATITIS CHRONIC
     Route: 065
  18. NASACORT [Concomitant]
     Indication: UNEVALUABLE EVENT
     Route: 065

REACTIONS (12)
  - Pulmonary hypertension [Not Recovered/Not Resolved]
  - Chest pain [Not Recovered/Not Resolved]
  - Adverse drug reaction [Recovered/Resolved]
  - Oesophageal disorder [Recovered/Resolved]
  - Back pain [Not Recovered/Not Resolved]
  - Liver function test abnormal [Recovered/Resolved]
  - Vomiting [Recovered/Resolved]
  - Overdose [Unknown]
  - Arthralgia [Not Recovered/Not Resolved]
  - Foreign body [Recovered/Resolved]
  - Migraine [Recovered/Resolved]
  - Drug dose omission [Unknown]
